FAERS Safety Report 24202208 (Version 2)
Quarter: 2024Q3

REPORT INFORMATION
  Report Type: Spontaneous
  Country: US (occurrence: US)
  Receive Date: 20240812
  Receipt Date: 20240904
  Transmission Date: 20241017
  Serious: Yes (Other)
  Sender: BIOGEN
  Company Number: US-BIOGEN-2024BI01265046

PATIENT
  Sex: Female

DRUGS (1)
  1. TYSABRI [Suspect]
     Active Substance: NATALIZUMAB
     Indication: Multiple sclerosis
     Route: 050
     Dates: start: 20220825

REACTIONS (5)
  - Drug dependence [Unknown]
  - Memory impairment [Not Recovered/Not Resolved]
  - Asthenia [Unknown]
  - Agitation [Unknown]
  - Dizziness [Unknown]
